FAERS Safety Report 16115638 (Version 2)
Quarter: 2025Q3

REPORT INFORMATION
  Report Type: Spontaneous
  Country: EU (occurrence: EU)
  Receive Date: 20190326
  Receipt Date: 20250714
  Transmission Date: 20251020
  Serious: Yes (Other)
  Sender: AUROBINDO
  Company Number: EU-AUROBINDO-AUR-APL-2019-015384

PATIENT
  Age: 72 Year
  Sex: Male

DRUGS (6)
  1. OXALIPLATIN [Suspect]
     Active Substance: OXALIPLATIN
     Indication: Adenocarcinoma of colon
     Route: 065
     Dates: start: 200811
  2. OXALIPLATIN [Suspect]
     Active Substance: OXALIPLATIN
     Indication: Metastases to lung
  3. BEVACIZUMAB [Suspect]
     Active Substance: BEVACIZUMAB
     Indication: Adenocarcinoma of colon
     Route: 065
     Dates: start: 200811
  4. BEVACIZUMAB [Suspect]
     Active Substance: BEVACIZUMAB
     Indication: Metastases to lung
  5. CAPECITABINE [Suspect]
     Active Substance: CAPECITABINE
     Indication: Adenocarcinoma of colon
     Route: 065
     Dates: start: 200811
  6. CAPECITABINE [Suspect]
     Active Substance: CAPECITABINE
     Indication: Metastases to lung

REACTIONS (4)
  - Hypertension [Recovering/Resolving]
  - Neuropathy peripheral [Unknown]
  - Thrombocytopenia [Unknown]
  - Palmar-plantar erythrodysaesthesia syndrome [Unknown]
